FAERS Safety Report 8009098-5 (Version None)
Quarter: 2011Q4

REPORT INFORMATION
  Report Type: 
  Country: None (occurrence: None)
  Receive Date: 20111227
  Receipt Date: 20111221
  Transmission Date: 20120403
  Serious: No
  Sender: FDA-Public Use
  Company Number: US-TEVA-313332USA

PATIENT
  Sex: Female
  Weight: 53.572 kg

DRUGS (1)
  1. PLAN B ONE-STEP [Suspect]
     Indication: POST COITAL CONTRACEPTION
     Dosage: 1.5 MILLIGRAM;
     Route: 048
     Dates: start: 20111209, end: 20111209

REACTIONS (6)
  - PAIN IN EXTREMITY [None]
  - PELVIC PAIN [None]
  - SOMNOLENCE [None]
  - ABDOMINAL DISTENSION [None]
  - BREAST PAIN [None]
  - NAUSEA [None]
